FAERS Safety Report 9586845 (Version 1)
Quarter: 2013Q4

REPORT INFORMATION
  Report Type: Spontaneous
  Country: UA (occurrence: UA)
  Receive Date: 20131003
  Receipt Date: 20131003
  Transmission Date: 20140711
  Serious: Yes (Other)
  Sender: FDA-Public Use
  Company Number: UA-BAYER-2013-118919

PATIENT
  Age: 42 Year
  Sex: Female

DRUGS (1)
  1. QLAIRA [Suspect]
     Indication: CONTRACEPTION
     Dosage: UNK
     Route: 048
     Dates: start: 20130713, end: 20130905

REACTIONS (5)
  - Pregnancy on oral contraceptive [Recovered/Resolved]
  - Nausea [Recovered/Resolved]
  - Malaise [None]
  - Haemorrhage in pregnancy [None]
  - Drug ineffective [None]
